FAERS Safety Report 14574347 (Version 1)
Quarter: 2018Q1

REPORT INFORMATION
  Report Type: Spontaneous
  Country: JP (occurrence: JP)
  Receive Date: 20180226
  Receipt Date: 20180226
  Transmission Date: 20180509
  Serious: Yes (Death, Other)
  Sender: FDA-Public Use
  Company Number: JP-SUCAMPO PHARMACEUTICALS INC.-SPI201800163

PATIENT
  Age: 64 Year
  Sex: Male

DRUGS (2)
  1. AMITIZA [Suspect]
     Active Substance: LUBIPROSTONE
     Indication: CONSTIPATION
  2. CELECOX [Concomitant]
     Active Substance: CELECOXIB
     Indication: CEREBRAL INFARCTION

REACTIONS (2)
  - Adverse event [Fatal]
  - Dermatitis [Unknown]

NARRATIVE: CASE EVENT DATE: 2013
